FAERS Safety Report 7471735-1 (Version None)
Quarter: 2011Q2

REPORT INFORMATION
  Report Type: 
  Country: None (occurrence: None)
  Receive Date: 20110511
  Receipt Date: 20100622
  Transmission Date: 20111010
  Serious: No
  Sender: FDA-Public Use
  Company Number: A0849496A

PATIENT
  Age: 69 Year
  Sex: Female

DRUGS (6)
  1. GABAPENTIN [Concomitant]
  2. TYKERB [Suspect]
     Indication: BREAST CANCER
     Dosage: 1250MG PER DAY
     Route: 048
     Dates: start: 20100302
  3. LISINOPRIL [Concomitant]
  4. XELODA [Suspect]
     Dates: start: 20100302, end: 20100305
  5. TAGAMET [Concomitant]
  6. SUPPLEMENT [Concomitant]

REACTIONS (3)
  - DIARRHOEA [None]
  - NAUSEA [None]
  - OESOPHAGEAL PAIN [None]
